FAERS Safety Report 4579149-9 (Version None)
Quarter: 2005Q1

REPORT INFORMATION
  Report Type: 
  Country: None (occurrence: None)
  Receive Date: 20050121
  Receipt Date: 20040730
  Transmission Date: 20050727
  Serious: Yes (Other)
  Sender: FDA-Public Use
  Company Number: STA-AE-04-MTX-341

PATIENT
  Age: 27 Year
  Sex: Female

DRUGS (11)
  1. METHOTREXATE [Suspect]
     Indication: RHEUMATOID ARTHRITIS
     Dosage: 12.5 MG 1X PER 1 WK, ORAL
     Route: 048
     Dates: start: 20001220, end: 20030324
  2. METHOTREXATE [Suspect]
     Indication: RHEUMATOID ARTHRITIS
     Dosage: 12.5 MG 1X PER 1 WK, ORAL
     Route: 048
     Dates: start: 20030407
  3. AZULFIDINE [Suspect]
     Dosage: 500 MG 2X PER 1 DAY, ORAL
     Route: 048
     Dates: start: 20010625
  4. PLAQUENIL [Suspect]
     Dosage: 0.2 G 1X PER 1 DAY, ORAL
     Route: 048
     Dates: start: 20010625, end: 20030329
  5. REMICADE [Suspect]
     Dosage: 300 MG 1X PER 8 WK, INTRAVENOUS
     Route: 042
     Dates: start: 20021125
  6. MELOXICAM [Concomitant]
  7. FOLIC ACID [Concomitant]
  8. DIOVAN [Concomitant]
  9. LASIX [Concomitant]
  10. POTASSIUM CHLORIDE [Concomitant]
  11. BEXTRA [Concomitant]

REACTIONS (3)
  - GASTRIC ULCER [None]
  - NAUSEA [None]
  - ULCER [None]
